FAERS Safety Report 14324958 (Version 1)
Quarter: 2017Q4

REPORT INFORMATION
  Report Type: Spontaneous
  Country: US (occurrence: US)
  Receive Date: 20171223
  Receipt Date: 20171223
  Transmission Date: 20180321
  Serious: Yes (Life-Threatening, Hospitalization, Disabling)
  Sender: FDA-Public Use
  Company Number: None

PATIENT
  Sex: Female
  Weight: 49.5 kg

DRUGS (3)
  1. TYSABRI [Suspect]
     Active Substance: NATALIZUMAB
     Indication: MULTIPLE SCLEROSIS
     Dosage: OTHER FREQUENCY:EVERY 28 DAYS;?
     Route: 042
     Dates: start: 20091001, end: 20140409
  2. HIGH BLOOD PRESSURE MEDICATION [Concomitant]
     Active Substance: UNSPECIFIED INGREDIENT
  3. VITAMIN FOR KIDNEY [Concomitant]

REACTIONS (5)
  - Haematological malignancy [None]
  - Dialysis [None]
  - Chronic kidney disease [None]
  - Acute kidney injury [None]
  - Quality of life decreased [None]

NARRATIVE: CASE EVENT DATE: 20140505
